FAERS Safety Report 10018080 (Version 2)
Quarter: 2014Q1

REPORT INFORMATION
  Report Type: Spontaneous
  Country: US (occurrence: US)
  Receive Date: 20140318
  Receipt Date: 20140318
  Transmission Date: 20141002
  Serious: Yes (Other)
  Sender: FDA-Public Use
  Company Number: US-BRISTOL-MYERS SQUIBB COMPANY-18930180

PATIENT
  Age: 52 Year
  Sex: Female

DRUGS (5)
  1. ERBITUX SOLN FOR INF [Suspect]
     Indication: HEAD AND NECK CANCER
     Dosage: LOT NO:IMF35?EXP:31/JUL/15;100MG/50ML
     Route: 042
     Dates: start: 20130520, end: 20130520
  2. METOPROLOL [Concomitant]
     Indication: BLOOD PRESSURE
  3. LORTAB [Concomitant]
     Indication: PAIN
  4. MAGIC MOUTHWASH [Concomitant]
     Indication: STOMATITIS
  5. ZOLOFT [Concomitant]
     Indication: DEPRESSION

REACTIONS (1)
  - Hypersensitivity [Recovered/Resolved]
